FAERS Safety Report 20758012 (Version 1)
Quarter: 2022Q2

REPORT INFORMATION
  Report Type: Spontaneous
  Country: US (occurrence: None)
  Receive Date: 20220427
  Receipt Date: 20220427
  Transmission Date: 20220721
  Serious: Yes (unspecified)
  Sender: FDA-Public Use
  Company Number: None

PATIENT
  Age: 34 Year
  Sex: Male

DRUGS (1)
  1. QULIPTA [Suspect]
     Active Substance: ATOGEPANT
     Indication: Migraine
     Dates: start: 202201

REACTIONS (4)
  - Impaired gastric emptying [None]
  - Therapy change [None]
  - Therapeutic product effect incomplete [None]
  - Migraine [None]

NARRATIVE: CASE EVENT DATE: 20220331
